FAERS Safety Report 7242560-1 (Version None)
Quarter: 2010Q4

REPORT INFORMATION
  Report Type: 
  Country: None (occurrence: None)
  Receive Date: 20101130
  Receipt Date: 20090729
  Transmission Date: 20110411
  Serious: Yes (Hospitalization)
  Sender: FDA-Public Use
  Company Number: 2009SP017417

PATIENT
  Age: 23 Year
  Sex: Female
  Weight: 63.5036 kg

DRUGS (2)
  1. NUVARING [Suspect]
     Indication: CONTRACEPTION
     Dosage: 1 DF; QM; VAG
     Route: 067
     Dates: start: 20060101, end: 20061016
  2. ADVIL LIQUI-GELS [Concomitant]

REACTIONS (2)
  - DEEP VEIN THROMBOSIS [None]
  - PHOTOPSIA [None]
